FAERS Safety Report 9456873 (Version 2)
Quarter: 2013Q3

REPORT INFORMATION
  Report Type: Report from Study
  Country: DE (occurrence: DE)
  Receive Date: 20130813
  Receipt Date: 20130829
  Transmission Date: 20140515
  Serious: Yes (Other)
  Sender: FDA-Public Use
  Company Number: DE-ABBOTT-13P-062-1132743-00

PATIENT
  Age: 43 Year
  Sex: Male

DRUGS (7)
  1. TRENANTONE [Suspect]
     Indication: PROSTATE CANCER METASTATIC
     Route: 058
     Dates: start: 20120301
  2. CHEMOTHERAPEUTICS [Concomitant]
     Indication: PROSTATE CANCER METASTATIC
     Dates: start: 20120301
  3. CHEMOTHERAPEUTICS [Concomitant]
     Dates: start: 20121206, end: 20130319
  4. CHEMOTHERAPEUTICS [Concomitant]
     Dates: start: 20130624
  5. ANTIANDROGENS [Concomitant]
     Indication: PROSTATE CANCER METASTATIC
     Dates: start: 20130319, end: 20130319
  6. ANTIANDROGENS [Concomitant]
     Indication: ANTIANDROGEN THERAPY
     Dates: start: 20130624
  7. BISPHOSPHONATES [Concomitant]
     Indication: PRODUCT USED FOR UNKNOWN INDICATION
     Route: 042
     Dates: start: 20130416

REACTIONS (3)
  - Metastases to meninges [Unknown]
  - Prostatic specific antigen increased [Not Recovered/Not Resolved]
  - Blood lactate dehydrogenase increased [Not Recovered/Not Resolved]
